FAERS Safety Report 13700579 (Version 2)
Quarter: 2017Q2

REPORT INFORMATION
  Report Type: Spontaneous
  Country: US (occurrence: US)
  Receive Date: 20170629
  Receipt Date: 20170629
  Transmission Date: 20170830
  Serious: No
  Sender: FDA-Public Use
  Company Number: US-AUROBINDO-AUR-APL-2016-09717

PATIENT
  Age: 72 Year
  Weight: 64.4 kg

DRUGS (1)
  1. ZOLPIDEM TARTRATE TABLETS 10 MG [Suspect]
     Active Substance: ZOLPIDEM TARTRATE
     Indication: SLEEP DISORDER
     Dosage: 10 MG, ONCE A DAY
     Route: 048

REACTIONS (2)
  - Condition aggravated [Recovered/Resolved]
  - Pollakiuria [Recovered/Resolved]
